APPROVED DRUG PRODUCT: MORPHINE SULFATE
Active Ingredient: MORPHINE SULFATE
Strength: 100MG/5ML
Dosage Form/Route: SOLUTION;ORAL
Application: A201011 | Product #003
Applicant: SANKALP LIFECARE INC
Approved: Oct 6, 2016 | RLD: No | RS: No | Type: DISCN